FAERS Safety Report 16953177 (Version 1)
Quarter: 2019Q4

REPORT INFORMATION
  Report Type: Spontaneous
  Country: GB (occurrence: GB)
  Receive Date: 20191023
  Receipt Date: 20191023
  Transmission Date: 20200122
  Serious: Yes (Other)
  Sender: FDA-Public Use
  Company Number: GB-MYLANLABS-2019M1100398

PATIENT
  Age: 56 Year
  Sex: Male
  Weight: 128 kg

DRUGS (6)
  1. FOLIC ACID. [Concomitant]
     Active Substance: FOLIC ACID
     Dosage: 1 DOSAGE FORM, QD (FOR 2 MONTHS)
     Dates: start: 20190715, end: 20190909
  2. FENBID [Concomitant]
     Active Substance: IBUPROFEN
     Dosage: 3 DOSAGE FORM, QD
     Dates: start: 20190711, end: 20190808
  3. AMLODIPINE [Suspect]
     Active Substance: AMLODIPINE BESYLATE
     Indication: PRODUCT USED FOR UNKNOWN INDICATION
     Dosage: 5 MILLIGRAM, QD
     Dates: start: 20190711
  4. ATENOLOL. [Concomitant]
     Active Substance: ATENOLOL
     Dosage: 1 DOSAGE FORM, QD (TAKE IN MORNING)
     Dates: start: 20160701
  5. IRBESARTAN. [Concomitant]
     Active Substance: IRBESARTAN
     Dosage: 1 DOSAGE FORM, QD (TAKE IN MORNING)
     Dates: start: 20160701, end: 20190802
  6. BENDROFLUMETHIAZIDE [Concomitant]
     Active Substance: BENDROFLUMETHIAZIDE
     Dosage: 1 DOSAGE FORM, QD (TAKE IN MORNING)
     Dates: start: 20190802

REACTIONS (3)
  - Joint swelling [Recovering/Resolving]
  - Peripheral swelling [Unknown]
  - Blister [Unknown]
